APPROVED DRUG PRODUCT: DAPTOMYCIN
Active Ingredient: DAPTOMYCIN
Strength: 500MG/VIAL
Dosage Form/Route: POWDER;INTRAVENOUS
Application: N217415 | Product #002
Applicant: HIKMA PHARMACEUTICALS USA INC
Approved: Jan 30, 2023 | RLD: Yes | RS: Yes | Type: RX

PATENTS:
Patent 12053502 | Expires: Aug 28, 2038
Patent 11759497 | Expires: Aug 28, 2038